FAERS Safety Report 7920122-8 (Version None)
Quarter: 2011Q4

REPORT INFORMATION
  Report Type: 
  Country: None (occurrence: None)
  Receive Date: 20111117
  Receipt Date: 20111107
  Transmission Date: 20120403
  Serious: Yes (Other)
  Sender: FDA-Public Use
  Company Number: BR-ALLERGAN-1114881US

PATIENT
  Age: 68 Year
  Sex: Female

DRUGS (2)
  1. JUVEDERM [Concomitant]
     Indication: PRODUCT USED FOR UNKNOWN INDICATION
     Route: 030
  2. BOTULINUM TOXIN TYPE A [Suspect]
     Indication: SKIN WRINKLING
     Dosage: UNK
     Route: 030
     Dates: start: 20111024, end: 20111024

REACTIONS (5)
  - PRURITUS [None]
  - ERYTHEMA [None]
  - FACIAL PARESIS [None]
  - VIITH NERVE PARALYSIS [None]
  - OEDEMA [None]
